FAERS Safety Report 9530678 (Version 2)
Quarter: 2013Q3

REPORT INFORMATION
  Report Type: Report from Study
  Country: CA (occurrence: CA)
  Receive Date: 20130918
  Receipt Date: 20130926
  Transmission Date: 20140515
  Serious: Yes (Hospitalization)
  Sender: FDA-Public Use
  Company Number: CA-PFIZER INC-2013259431

PATIENT
  Age: 36 Year
  Sex: Female
  Weight: 154.5 kg

DRUGS (5)
  1. TOFACITINIB CITRATE [Suspect]
     Indication: PSORIASIS
     Dosage: 10 MG, 2X/DAY
     Route: 048
     Dates: start: 20111005, end: 20130904
  2. ETHINYLESTRADIOL/LEVONORGESTREL [Suspect]
     Indication: CONTRACEPTION
     Dosage: 1 TAB, 1X/DAY
     Route: 048
     Dates: start: 20110920, end: 20130904
  3. CYMBALTA [Concomitant]
     Indication: DEPRESSION
     Dosage: 60 MG, 1X/DAY
     Route: 048
     Dates: start: 200907
  4. MULTIVITAMINS [Concomitant]
     Indication: ROUTINE HEALTH MAINTENANCE
     Dosage: 1 TAB, 1X/DAY
     Route: 048
     Dates: start: 20100623
  5. ADVIL [Concomitant]
     Indication: MIGRAINE
     Dosage: 400 MG, AS NEEDED
     Route: 048
     Dates: start: 20111005

REACTIONS (1)
  - Pulmonary embolism [Unknown]
